FAERS Safety Report 16009809 (Version 1)
Quarter: 2019Q1

REPORT INFORMATION
  Report Type: Spontaneous
  Country: US (occurrence: US)
  Receive Date: 20190227
  Receipt Date: 20190227
  Transmission Date: 20190418
  Serious: No
  Sender: FDA-Public Use
  Company Number: US-SA-2019SA053067

PATIENT
  Age: 38 Year
  Sex: Male

DRUGS (1)
  1. DUPIXENT [Suspect]
     Active Substance: DUPILUMAB
     Indication: DERMATITIS ATOPIC
     Dosage: 300 MG, QOW
     Route: 058
     Dates: start: 201901

REACTIONS (8)
  - Oropharyngeal pain [Unknown]
  - Conjunctivitis [Unknown]
  - Lacrimation increased [Unknown]
  - Feeling abnormal [Unknown]
  - Middle ear effusion [Unknown]
  - Ocular hyperaemia [Unknown]
  - Alopecia [Unknown]
  - Eye irritation [Unknown]

NARRATIVE: CASE EVENT DATE: 2019
